FAERS Safety Report 13929565 (Version 2)
Quarter: 2018Q1

REPORT INFORMATION
  Report Type: Spontaneous
  Country: US (occurrence: US)
  Receive Date: 20170901
  Receipt Date: 20180118
  Transmission Date: 20180508
  Serious: No
  Sender: FDA-Public Use
  Company Number: US-PFIZER INC-2017376128

PATIENT
  Age: 52 Year
  Sex: Female

DRUGS (1)
  1. EUCRISA [Suspect]
     Active Substance: CRISABOROLE
     Indication: ERYTHEMA DYSCHROMICUM PERSTANS
     Dosage: UNK, 2X/DAY (APPLY TO AFFECTED AREA)
     Dates: start: 20170622, end: 20170829

REACTIONS (2)
  - Pruritus [Unknown]
  - Sleep disorder [Unknown]

NARRATIVE: CASE EVENT DATE: 2017
